FAERS Safety Report 20160422 (Version 1)
Quarter: 2021Q4

REPORT INFORMATION
  Report Type: Spontaneous
  Country: US (occurrence: US)
  Receive Date: 20211208
  Receipt Date: 20211208
  Transmission Date: 20220303
  Serious: Yes (Death, Other)
  Sender: FDA-Public Use
  Company Number: US-GLAXOSMITHKLINE-US2021GSK249023

PATIENT
  Age: 32 Month
  Sex: Female

DRUGS (7)
  1. ACYCLOVIR [Suspect]
     Active Substance: ACYCLOVIR
     Indication: Herpes simplex
     Dosage: 20 MG/KG, BID
     Route: 048
  2. ACYCLOVIR [Suspect]
     Active Substance: ACYCLOVIR
     Dosage: 20 MG/KG, QID
     Route: 048
  3. ACYCLOVIR [Suspect]
     Active Substance: ACYCLOVIR
     Dosage: 20 MG/KG, QID
     Route: 042
  4. FOSCARNET [Concomitant]
     Active Substance: FOSCARNET
     Indication: Herpes simplex
     Dosage: 40 MG/KG, TID
     Route: 042
  5. CEPHALEXIN [Concomitant]
     Active Substance: CEPHALEXIN
     Indication: Staphylococcal infection
     Dosage: UNK
  6. MUPIROCIN [Concomitant]
     Active Substance: MUPIROCIN
     Indication: Staphylococcal infection
     Dosage: UNK
  7. CEFEPIME [Concomitant]
     Active Substance: CEFEPIME HYDROCHLORIDE
     Indication: Pseudomonas infection

REACTIONS (3)
  - Pathogen resistance [Unknown]
  - Drug resistance [Unknown]
  - Pneumonia [Fatal]
